FAERS Safety Report 10557409 (Version 1)
Quarter: 2014Q4

REPORT INFORMATION
  Report Type: Spontaneous
  Country: FR (occurrence: FR)
  Receive Date: 20141031
  Receipt Date: 20141031
  Transmission Date: 20150529
  Serious: Yes (Hospitalization)
  Sender: FDA-Public Use
  Company Number: FR-009507513-1410FRA011822

PATIENT
  Age: 33 Year
  Sex: Male

DRUGS (5)
  1. GINSENG (UNSPECIFIED) [Suspect]
     Active Substance: ASIAN GINSENG
     Dosage: UNK
     Dates: start: 200601, end: 200602
  2. CELESTENE [Suspect]
     Active Substance: BETAMETHASONE
     Indication: PHARYNGITIS
     Dosage: UNK
     Dates: start: 20060216, end: 20060218
  3. CARBOCYSTEINE [Suspect]
     Active Substance: CARBOCYSTEINE
     Dosage: UNK
     Dates: start: 20060219, end: 20060220
  4. ACETAMINOPHEN. [Suspect]
     Active Substance: ACETAMINOPHEN
     Indication: PHARYNGITIS
     Dosage: UNK
     Dates: start: 20060216, end: 20060218
  5. HELICIDINE [Suspect]
     Active Substance: ESCARGOT
     Indication: PHARYNGITIS
     Dosage: UNK
     Dates: start: 20060216, end: 20060218

REACTIONS (3)
  - Liver disorder [None]
  - Blood albumin decreased [None]
  - Stevens-Johnson syndrome [Recovered/Resolved]

NARRATIVE: CASE EVENT DATE: 20060220
